FAERS Safety Report 4938485-4 (Version None)
Quarter: 2006Q1

REPORT INFORMATION
  Report Type: 
  Country: None (occurrence: None)
  Receive Date: 20060309
  Receipt Date: 20060227
  Transmission Date: 20060701
  Serious: Yes (Hospitalization)
  Sender: FDA-Public Use
  Company Number: PHBS2006FI03322

PATIENT
  Age: 36 Year
  Sex: Male

DRUGS (4)
  1. CLOZAPINE [Suspect]
     Indication: SCHIZOPHRENIA
     Route: 048
     Dates: start: 20051223, end: 20060121
  2. DIAZEPAM [Concomitant]
     Dosage: 5 MG/D
     Dates: start: 20051212
  3. TENOX [Concomitant]
     Dates: start: 20051212
  4. ZYPREXA [Concomitant]
     Dosage: 30 MG/D
     Dates: end: 20060117

REACTIONS (8)
  - BACTERIAL INFECTION [None]
  - BLISTER [None]
  - DIARRHOEA [None]
  - LEUKOPENIA [None]
  - NEUTROPENIA [None]
  - ORAL CANDIDIASIS [None]
  - PYREXIA [None]
  - TOOTH DISORDER [None]
